FAERS Safety Report 18826565 (Version 1)
Quarter: 2021Q1

REPORT INFORMATION
  Report Type: Report from Study
  Country: US (occurrence: US)
  Receive Date: 20210202
  Receipt Date: 20210202
  Transmission Date: 20210419
  Serious: Yes (Hospitalization, Other)
  Sender: FDA-Public Use
  Company Number: US-TAKEDA-2021TUS000764

PATIENT
  Sex: Male
  Weight: 74 kg

DRUGS (7)
  1. PENTASA [Suspect]
     Active Substance: MESALAMINE
     Indication: CROHN^S DISEASE
     Dosage: 500 MILLIGRAM (2 CAPSULES), QID
     Route: 048
  2. VITAMIN K [Concomitant]
     Active Substance: PHYTONADIONE
     Route: 065
  3. LISINOPRIL. [Concomitant]
     Active Substance: LISINOPRIL
     Indication: BLOOD PRESSURE INCREASED
     Dosage: UNK UNK, QD
     Route: 065
  4. VITAMIN B12 [Concomitant]
     Active Substance: CYANOCOBALAMIN
     Route: 065
  5. CENTRUM ADVANCE [Concomitant]
     Active Substance: VITAMINS
     Route: 065
  6. OMEPRAZOLE. [Concomitant]
     Active Substance: OMEPRAZOLE
     Indication: GASTROINTESTINAL DISORDER
     Route: 065
  7. VITAMIN C [Concomitant]
     Active Substance: ASCORBIC ACID
     Route: 065

REACTIONS (10)
  - Inappropriate schedule of product administration [Unknown]
  - Memory impairment [Unknown]
  - Vomiting [Unknown]
  - Cholecystectomy [Unknown]
  - Visual impairment [Unknown]
  - Somnolence [Unknown]
  - Loss of consciousness [Unknown]
  - Fall [Unknown]
  - Dyspnoea [Unknown]
  - Pain [Unknown]
